FAERS Safety Report 6615220-5 (Version None)
Quarter: 2010Q1

REPORT INFORMATION
  Report Type: 
  Country: None (occurrence: None)
  Receive Date: 20100305
  Receipt Date: 20100225
  Transmission Date: 20100710
  Serious: Yes (Death)
  Sender: FDA-Public Use
  Company Number: FR-NOVOPROD-303749

PATIENT
  Age: 81 Year
  Sex: Female

DRUGS (12)
  1. ACTRAPID [Suspect]
     Indication: TYPE 1 DIABETES MELLITUS
     Dosage: UK/SC
     Route: 058
  2. LEVEMIR [Suspect]
     Indication: TYPE 1 DIABETES MELLITUS
     Dosage: UK/SC
     Route: 058
  3. LERCAN [Concomitant]
     Dosage: 10 MG, QD
     Route: 048
  4. VASTAREL [Concomitant]
     Dosage: 35 MG, QD
  5. TRIVASTAL                          /00397201/ [Concomitant]
     Dosage: 50 MG, QD
     Route: 048
  6. MODOPAR [Concomitant]
  7. CAPTOPRIL AND HYDROCHLOROTHIAZIDE [Concomitant]
     Route: 048
  8. GLUCOPHAGE [Concomitant]
     Route: 048
  9. DIFFU K [Concomitant]
  10. CLOPIXOL                           /00876701/ [Concomitant]
     Route: 048
  11. INFLUENZA VACCINE [Concomitant]
     Indication: INFLUENZA
     Dosage: UNK
     Dates: start: 20091014, end: 20091014
  12. SWINE FLU VACCINE, MONOVALENT [Concomitant]
     Indication: H1N1 INFLUENZA
     Dosage: UNK
     Route: 030
     Dates: start: 20100112, end: 20100112

REACTIONS (1)
  - SUDDEN DEATH [None]
